FAERS Safety Report 6886400-9 (Version None)
Quarter: 2010Q3

REPORT INFORMATION
  Report Type: 
  Country: None (occurrence: None)
  Receive Date: 20100729
  Receipt Date: 20080407
  Transmission Date: 20110219
  Serious: Yes (Other)
  Sender: FDA-Public Use
  Company Number: US-PFIZER INC-2008010919

PATIENT
  Sex: Male
  Weight: 109.09 kg

DRUGS (2)
  1. CELEBREX [Suspect]
     Indication: ARTHRALGIA
     Route: 048
     Dates: start: 20070101
  2. SKELAXIN [Concomitant]
     Dosage: TWO TO THREE TIMES DAILY
     Route: 048

REACTIONS (3)
  - HYPERTENSION [None]
  - HYPOACUSIS [None]
  - TINNITUS [None]
